FAERS Safety Report 12464478 (Version 3)
Quarter: 2016Q3

REPORT INFORMATION
  Report Type: Report from Study
  Country: DE (occurrence: DE)
  Receive Date: 20160614
  Receipt Date: 20160915
  Transmission Date: 20161109
  Serious: Yes (Death, Hospitalization, Other)
  Sender: FDA-Public Use
  Company Number: DE-ARIAD-2013DE001698

PATIENT
  Age: 52 Year
  Sex: Male

DRUGS (1)
  1. PONATINIB [Suspect]
     Active Substance: PONATINIB
     Indication: CHRONIC MYELOID LEUKAEMIA
     Dosage: 45 MG, QD
     Route: 048

REACTIONS (8)
  - Pneumonia [Unknown]
  - Nephrosclerosis [Unknown]
  - Ischaemic cerebral infarction [Fatal]
  - Hepatic necrosis [Unknown]
  - Pulmonary oedema [Unknown]
  - Gastrointestinal neoplasm [Unknown]
  - Aortic arteriosclerosis [Not Recovered/Not Resolved]
  - Splenomegaly [Unknown]
